FAERS Safety Report 4746478-5 (Version None)
Quarter: 2005Q3

REPORT INFORMATION
  Report Type: 
  Country: None (occurrence: None)
  Receive Date: 20050817
  Receipt Date: 20050809
  Transmission Date: 20060218
  Serious: Yes (Hospitalization)
  Sender: FDA-Public Use
  Company Number: NO-JNJFOC-20050802183

PATIENT
  Sex: Male

DRUGS (6)
  1. REMICADE [Suspect]
     Dosage: 12TH INFUSION.
     Route: 042
  2. REMICADE [Suspect]
     Indication: PSORIASIS
     Dosage: 11TH INFUSION.
     Route: 042
  3. REMICADE [Suspect]
     Indication: ANKYLOSING SPONDYLITIS
     Route: 042
  4. VIOXX [Concomitant]
     Route: 048
  5. PARALGIN FORTE [Concomitant]
     Route: 065
  6. PARALGIN FORTE [Concomitant]
     Route: 065

REACTIONS (2)
  - DEMYELINATING POLYNEUROPATHY [None]
  - PERIPHERAL PARALYSIS [None]
